FAERS Safety Report 18685247 (Version 1)
Quarter: 2020Q4

REPORT INFORMATION
  Report Type: Spontaneous
  Country: CN (occurrence: CN)
  Receive Date: 20201230
  Receipt Date: 20201230
  Transmission Date: 20210114
  Serious: Yes (Hospitalization, Other)
  Sender: FDA-Public Use
  Company Number: CN-PFIZER INC-2020512228

PATIENT
  Age: 84 Year
  Sex: Female

DRUGS (1)
  1. CELEBREX [Suspect]
     Active Substance: CELECOXIB
     Indication: FRACTURE PAIN
     Dosage: 1 DF, DAILY
     Route: 048
     Dates: start: 202002

REACTIONS (2)
  - Cerebral infarction [Not Recovered/Not Resolved]
  - Hemiplegia [Unknown]
